FAERS Safety Report 24162111 (Version 1)
Quarter: 2024Q3

REPORT INFORMATION
  Report Type: Report from Study
  Country: TW (occurrence: None)
  Receive Date: 20240801
  Receipt Date: 20240801
  Transmission Date: 20241017
  Serious: Yes (Other)
  Sender: ASTRAZENECA
  Company Number: 2023A118051

PATIENT
  Age: 73 Year
  Sex: Male

DRUGS (2)
  1. IMFINZI [Suspect]
     Active Substance: DURVALUMAB
     Dosage: 1480MG IN UNKNOWN FREQUENCY
     Route: 042
     Dates: start: 20221014, end: 20230511
  2. IMFINZI [Suspect]
     Active Substance: DURVALUMAB
     Dosage: 1440MG IN UNKNOWN FREQUENCY
     Route: 042
     Dates: start: 20220919

REACTIONS (1)
  - Pulmonary oedema [Unknown]

NARRATIVE: CASE EVENT DATE: 20230401
